FAERS Safety Report 7795337-2 (Version None)
Quarter: 2011Q4

REPORT INFORMATION
  Report Type: 
  Country: None (occurrence: None)
  Receive Date: 20111004
  Receipt Date: 20110927
  Transmission Date: 20120403
  Serious: Yes (Hospitalization, Other)
  Sender: FDA-Public Use
  Company Number: PHHY2011JP30994

PATIENT
  Sex: Male

DRUGS (6)
  1. LOSARTAN POTASSIUM [Concomitant]
     Dosage: 100 MG, UNK
     Route: 048
  2. AFINITOR [Suspect]
     Indication: RENAL CELL CARCINOMA
     Dosage: 10 MG, DAILY
     Route: 048
     Dates: start: 20110216, end: 20110228
  3. SORAFENIB TOSILATE [Concomitant]
     Indication: RENAL CELL CARCINOMA
     Dosage: 800 MG, UNK
     Route: 048
     Dates: start: 20090513, end: 20100708
  4. AFINITOR [Suspect]
     Dosage: 5 MG, DAILY
     Route: 048
     Dates: start: 20110304, end: 20110410
  5. INTERFERON ALFA [Concomitant]
     Indication: RENAL CELL CARCINOMA
     Dosage: 5000000 IU, UNK
     Route: 042
     Dates: start: 20080401, end: 20090501
  6. SUNITINIB MALATE [Concomitant]
     Indication: RENAL CELL CARCINOMA
     Dosage: 25 MG, UNK
     Route: 048
     Dates: start: 20100722, end: 20110118

REACTIONS (2)
  - PNEUMONIA [None]
  - BLOOD LACTATE DEHYDROGENASE INCREASED [None]
